APPROVED DRUG PRODUCT: VICODIN ES
Active Ingredient: ACETAMINOPHEN; HYDROCODONE BITARTRATE
Strength: 750MG;7.5MG
Dosage Form/Route: TABLET;ORAL
Application: A089736 | Product #001
Applicant: ABBVIE INC
Approved: Dec 9, 1988 | RLD: No | RS: No | Type: DISCN